FAERS Safety Report 5340161-3 (Version None)
Quarter: 2007Q2

REPORT INFORMATION
  Report Type: 
  Country: None (occurrence: None)
  Receive Date: 20070531
  Receipt Date: 20070525
  Transmission Date: 20071010
  Serious: Yes (Hospitalization)
  Sender: FDA-Public Use
  Company Number: A0653019A

PATIENT
  Age: 66 Year
  Sex: Female

DRUGS (13)
  1. AVANDIA [Suspect]
     Dosage: 4MG TWICE PER DAY
     Route: 048
  2. PLAVIX [Concomitant]
  3. ASPIRIN [Concomitant]
  4. GLIPIZIDE [Concomitant]
  5. COREG [Concomitant]
  6. VYTORIN [Concomitant]
  7. ACTONEL [Concomitant]
  8. FEMARA [Concomitant]
  9. CALCIUM PLUS D [Concomitant]
  10. SERTRALINE [Concomitant]
  11. ADVAIR DISKUS 100/50 [Concomitant]
  12. ALBUTEROL [Concomitant]
  13. SPIRIVA [Concomitant]

REACTIONS (2)
  - CORONARY ARTERIAL STENT INSERTION [None]
  - STENT PLACEMENT [None]
